FAERS Safety Report 4876999-6 (Version None)
Quarter: 2005Q4

REPORT INFORMATION
  Report Type: 
  Country: None (occurrence: None)
  Receive Date: 20051206
  Receipt Date: 20050913
  Transmission Date: 20060501
  Serious: No
  Sender: FDA-Public Use
  Company Number: USA0509108020

PATIENT
  Age: 53 Year
  Sex: Female

DRUGS (6)
  1. CYMBALTA [Suspect]
     Indication: HYPOAESTHESIA
     Dosage: 90 MG
     Dates: start: 20050901
  2. PROZAC [Suspect]
     Indication: DEPRESSION
     Dosage: 60 MG
     Dates: start: 19900101, end: 20050901
  3. ALLEGRA [Concomitant]
  4. NEWPHASE [Concomitant]
  5. B12 (CYANOCOBALAMIN-TANNIN COMPLEX) [Concomitant]
  6. VITAMINS [Concomitant]

REACTIONS (6)
  - DEPRESSION [None]
  - DRUG INEFFECTIVE [None]
  - FEELING ABNORMAL [None]
  - HEADACHE [None]
  - ILLUSION [None]
  - WHEEZING [None]
